FAERS Safety Report 8075325-1 (Version None)
Quarter: 2012Q1

REPORT INFORMATION
  Report Type: 
  Country: None (occurrence: None)
  Receive Date: 20120127
  Receipt Date: 20111123
  Transmission Date: 20120608
  Serious: No
  Sender: FDA-Public Use
  Company Number: US-MYLANLABS-2011S1021297

PATIENT
  Age: 67 Year
  Sex: Female

DRUGS (8)
  1. ALPRAZOLAM [Concomitant]
     Route: 048
     Dates: start: 20110801
  2. CLONIDINE [Suspect]
     Indication: BLOOD PRESSURE INCREASED
     Dosage: CHANGED QW
     Route: 062
     Dates: start: 20110502, end: 20111013
  3. MULTI-VITAMINS [Concomitant]
  4. FISH OIL [Concomitant]
  5. CLONIDINE [Suspect]
     Dosage: CHANGED QW
     Route: 062
     Dates: start: 20111104
  6. POTASSIUM CHLORIDE [Concomitant]
  7. MAGNESIUM [Concomitant]
  8. EXFORGE [Concomitant]
     Dosage: 10/320MG
     Route: 048
     Dates: start: 20110810

REACTIONS (8)
  - DRUG INEFFECTIVE [None]
  - BLOOD PRESSURE INCREASED [None]
  - APPLICATION SITE RASH [None]
  - APPLICATION SITE PRURITUS [None]
  - APPLICATION SITE IRRITATION [None]
  - APPLICATION SITE BURN [None]
  - APPLICATION SITE ERYTHEMA [None]
  - APPLICATION SITE VESICLES [None]
